FAERS Safety Report 8471130 (Version 3)
Quarter: 2014Q2

REPORT INFORMATION
  Report Type: Spontaneous
  Country: US (occurrence: US)
  Receive Date: 20120322
  Receipt Date: 20140506
  Transmission Date: 20141212
  Serious: Yes (Hospitalization, Other)
  Sender: FDA-Public Use
  Company Number: US-BAYER-2012-024472

PATIENT
  Age: 18 Year
  Sex: Female
  Weight: 61.68 kg

DRUGS (12)
  1. YAZ [Suspect]
     Dosage: UNK
     Dates: start: 200501, end: 201101
  2. YASMIN [Suspect]
     Dosage: UNK
     Dates: start: 200603, end: 201101
  3. BENICAL [Concomitant]
  4. VICODIN [Concomitant]
  5. EXCEDRIN [ACETYLSALICYLIC ACID,CAFFEINE,PARACETAMOL,SALICYLAMIDE] [Concomitant]
  6. FEXOFENADINE HYDROCHLORIDE [Concomitant]
  7. DICYCLOMINE [Concomitant]
     Dosage: 20 MG, UNK
  8. HYDROCODONE [HYDROCODONE] [Concomitant]
  9. TOBRADEX [Concomitant]
  10. PONSTEL [Concomitant]
  11. PONSTEL [Concomitant]
  12. BENTYL [Concomitant]

REACTIONS (8)
  - Cholecystectomy [None]
  - Cholecystitis chronic [None]
  - Biliary dyskinesia [None]
  - Pain [None]
  - General physical health deterioration [None]
  - Emotional distress [None]
  - Anxiety [None]
  - Anhedonia [None]
